FAERS Safety Report 7035418-4 (Version None)
Quarter: 2010Q4

REPORT INFORMATION
  Report Type: 
  Country: None (occurrence: None)
  Receive Date: 20101008
  Receipt Date: 20100929
  Transmission Date: 20110411
  Serious: Yes (Hospitalization, Other)
  Sender: FDA-Public Use
  Company Number: US-PFIZER INC-2008078602

PATIENT
  Sex: Male
  Weight: 131.5 kg

DRUGS (1)
  1. LIPITOR [Suspect]
     Indication: BLOOD CHOLESTEROL INCREASED
     Dosage: 80 MG, 1X/DAY
     Route: 048
     Dates: start: 20010101

REACTIONS (28)
  - BACK PAIN [None]
  - BODY HEIGHT DECREASED [None]
  - CARDIAC FAILURE CONGESTIVE [None]
  - CARDIOMYOPATHY [None]
  - CHRONIC OBSTRUCTIVE PULMONARY DISEASE [None]
  - CORONARY ARTERY DISEASE [None]
  - DEMENTIA [None]
  - DRY MOUTH [None]
  - DYSPNOEA [None]
  - ECCHYMOSIS [None]
  - EPISTAXIS [None]
  - FALL [None]
  - HYPERTENSION [None]
  - HYPOGONADISM [None]
  - INSOMNIA [None]
  - IRON DEFICIENCY ANAEMIA [None]
  - MUSCLE INJURY [None]
  - MYOPATHY [None]
  - OEDEMA PERIPHERAL [None]
  - ONYCHOMYCOSIS [None]
  - OROPHARYNGEAL SWELLING [None]
  - OSTEOPOROSIS [None]
  - PAIN [None]
  - RENAL FAILURE ACUTE [None]
  - TENDON RUPTURE [None]
  - URINARY TRACT INFECTION [None]
  - VITAMIN D DEFICIENCY [None]
  - VOMITING [None]
